FAERS Safety Report 8653125 (Version 4)
Quarter: 2013Q2

REPORT INFORMATION
  Report Type: Spontaneous
  Country: US (occurrence: US)
  Receive Date: 20120706
  Receipt Date: 20130503
  Transmission Date: 20140414
  Serious: No
  Sender: FDA-Public Use
  Company Number: US-ASTRAZENECA-2012SE42574

PATIENT
  Age: 58 Year
  Sex: Female

DRUGS (8)
  1. ATACAND [Suspect]
     Route: 048
  2. SEROQUEL [Suspect]
     Indication: SLEEP DISORDER
     Route: 048
     Dates: start: 2011
  3. SEROQUEL [Suspect]
     Indication: DEPRESSION
     Route: 048
     Dates: start: 2011
  4. SEROQUEL [Suspect]
     Indication: SLEEP DISORDER
     Dosage: GENERIC, 75 MG AT NIGHT
     Route: 048
     Dates: start: 2012
  5. SEROQUEL [Suspect]
     Indication: DEPRESSION
     Dosage: GENERIC, 75 MG AT NIGHT
     Route: 048
     Dates: start: 2012
  6. SEROQUEL [Suspect]
     Indication: SLEEP DISORDER
     Route: 048
     Dates: start: 2012
  7. SEROQUEL [Suspect]
     Indication: DEPRESSION
     Route: 048
     Dates: start: 2012
  8. WELLBUTRIN [Concomitant]
     Indication: DEPRESSION
     Route: 048

REACTIONS (8)
  - Migraine [Recovered/Resolved]
  - Abdominal discomfort [Recovered/Resolved]
  - Impaired driving ability [Recovered/Resolved]
  - Insomnia [Unknown]
  - Malaise [Unknown]
  - Drug dose omission [Unknown]
  - Intentional drug misuse [Unknown]
  - Drug ineffective [Unknown]
